FAERS Safety Report 17950895 (Version 1)
Quarter: 2020Q2

REPORT INFORMATION
  Report Type: Report from Study
  Country: NL (occurrence: NL)
  Receive Date: 20200626
  Receipt Date: 20200626
  Transmission Date: 20200714
  Serious: Yes (Hospitalization)
  Sender: FDA-Public Use
  Company Number: NL-TEVA-2020-NL-1791377

PATIENT
  Age: 58 Year
  Sex: Male

DRUGS (6)
  1. METHOTREXATE (METHOTREXATE SODIUM) [Suspect]
     Active Substance: METHOTREXATE SODIUM
     Indication: RHEUMATOID ARTHRITIS
     Dosage: 15MG, 1X/W
     Dates: start: 20200113, end: 20200225
  2. OMEPRAZOL [Concomitant]
     Active Substance: OMEPRAZOLE
     Dosage: 20 MILLIGRAM DAILY; THERAPY START DATE AND END DATE: ASKED BUT UNKNOWN
  3. HYDROXYCHLOROQUINE [Concomitant]
     Active Substance: HYDROXYCHLOROQUINE
     Dosage: 400 MILLIGRAM DAILY; THERAPY END DATE: ASKED BUT UNKNOWN
     Dates: start: 20190325
  4. FOLIUMZUUR [Concomitant]
     Active Substance: FOLIC ACID
     Dosage: 10MG, 2X/W, THERAPY END DATE: ASKED BUT UNKNOWN
     Dates: start: 20060607
  5. PREDNISOLON [Concomitant]
     Active Substance: PREDNISOLONE
     Dosage: 15 MILLIGRAM DAILY;
     Dates: start: 20200113, end: 20200406
  6. IBUPROFEN BRUIS ZN TOT 2DD600 MG . [Concomitant]
     Dosage: MG, N, EFFERVESCENT, THERAPY START DATE: ASKED BUT UNKNOWN
     Dates: end: 20200605

REACTIONS (1)
  - Emphysema [Recovered/Resolved]

NARRATIVE: CASE EVENT DATE: 20200225
